FAERS Safety Report 9523654 (Version 1)
Quarter: 2013Q3

REPORT INFORMATION
  Report Type: Spontaneous
  Country: US (occurrence: US)
  Receive Date: 20130913
  Receipt Date: 20130913
  Transmission Date: 20140515
  Serious: Yes (Congenital Anomaly, Other)
  Sender: FDA-Public Use
  Company Number: PHHY2013US100104

PATIENT
  Sex: Male

DRUGS (3)
  1. DEFEROXAMINE [Suspect]
     Dosage: UNK UKN, UNK
     Route: 064
  2. DEFERASIROX [Suspect]
     Dosage: UNK UKN, UNK
     Route: 064
  3. VITAMIN K [Concomitant]
     Dosage: 15 ML, Q3H

REACTIONS (6)
  - Dysmorphism [Unknown]
  - Congenital nose malformation [Unknown]
  - Sickle cell trait [Unknown]
  - Cyanosis [Unknown]
  - Dyspnoea [Unknown]
  - Foetal exposure during pregnancy [Unknown]
